FAERS Safety Report 7573103-0 (Version None)
Quarter: 2011Q2

REPORT INFORMATION
  Report Type: 
  Country: None (occurrence: None)
  Receive Date: 20110627
  Receipt Date: 20110613
  Transmission Date: 20111010
  Serious: Yes (Death)
  Sender: FDA-Public Use
  Company Number: US-MYLANLABS-2011S1012534

PATIENT
  Age: 43 Year
  Sex: Female
  Weight: 79 kg

DRUGS (4)
  1. ALPRAZOLAM [Suspect]
     Dosage: PRESCRIBED 2MG 3 TIMES DAILY BUT TOOK 200MG IN 6 DAYS
     Route: 048
  2. ZOLPIDEM [Suspect]
     Route: 048
  3. CITALOPRAM HYDROBROMIDE [Concomitant]
     Route: 065
  4. ZIPRASIDONE HYDROCHLORIDE [Concomitant]
     Route: 065

REACTIONS (3)
  - INTENTIONAL DRUG MISUSE [None]
  - WITHDRAWAL SYNDROME [None]
  - HYPERTENSION [None]
